FAERS Safety Report 9123265 (Version 2)
Quarter: 2013Q1

REPORT INFORMATION
  Report Type: Spontaneous
  Country: US (occurrence: US)
  Receive Date: 20130227
  Receipt Date: 20130318
  Transmission Date: 20140127
  Serious: No
  Sender: FDA-Public Use
  Company Number: US-VERTEX PHARMACEUTICALS INC.-2013-002644

PATIENT
  Age: 50 None
  Sex: Female
  Weight: 95 kg

DRUGS (3)
  1. INCIVEK [Suspect]
     Indication: HEPATITIS C
     Dosage: 750 MG, TID
     Route: 048
     Dates: start: 20130216
  2. COPEGUS [Suspect]
     Indication: HEPATITIS C
     Dosage: 600 MG, BID
     Route: 048
     Dates: start: 20130216
  3. PEGASYS [Suspect]
     Indication: HEPATITIS C
     Dosage: 180 ?G,QW
     Route: 058
     Dates: start: 20130215

REACTIONS (6)
  - Pyrexia [Not Recovered/Not Resolved]
  - Cough [Not Recovered/Not Resolved]
  - Rash erythematous [Not Recovered/Not Resolved]
  - Diarrhoea [Recovered/Resolved]
  - Anorectal discomfort [Recovered/Resolved]
  - Dysgeusia [Not Recovered/Not Resolved]
